FAERS Safety Report 8156154-7 (Version None)
Quarter: 2012Q1

REPORT INFORMATION
  Report Type: 
  Country: None (occurrence: None)
  Receive Date: 20120222
  Receipt Date: 20120216
  Transmission Date: 20120608
  Serious: Yes (Hospitalization, Other)
  Sender: FDA-Public Use
  Company Number: US-PFIZER INC-2011050596

PATIENT
  Sex: Female
  Weight: 133 kg

DRUGS (15)
  1. FUROSEMIDE [Concomitant]
     Indication: FLUID RETENTION
     Dosage: 20 MG, TWO TIMES A DAY IN THE MORNING AND AT LUNCH
  2. OMEPRAZOLE [Concomitant]
     Indication: OESOPHAGEAL DISORDER
     Dosage: 40 MG, DAILY IN MORNING
  3. LOVASTATIN [Concomitant]
     Indication: BLOOD CHOLESTEROL INCREASED
     Dosage: 40 MG, DAILY IN THE EVENING
  4. TRIAMTERENE AND HYDROCHLOROTHIAZIDE [Concomitant]
     Indication: FLUID RETENTION
  5. LISINOPRIL [Concomitant]
     Indication: HYPERTENSION
     Dosage: 20 MG, DAILY AT LUNCH
  6. LEVOTHYROXINE [Concomitant]
     Indication: THYROID DISORDER
     Dosage: UNK
  7. GLIPIZIDE [Concomitant]
     Indication: DIABETES MELLITUS
     Dosage: 15 MG IN THE MORNING AND 5 MG IN THE EVENING
  8. LEVOFLOXACIN [Concomitant]
     Indication: THYROID DISORDER
     Dosage: 100 MG, DAILY IN MORNING
  9. METFORMIN [Concomitant]
     Indication: DIABETES MELLITUS
     Dosage: 1000 MG, 2X/DAY
  10. KLOR-CON [Concomitant]
     Dosage: 20 MG, DAILY IN EVENING
  11. TOVIAZ [Suspect]
     Indication: INCONTINENCE
     Dosage: 8 MG, DAILY
     Dates: start: 20110101
  12. TRIAMTERENE AND HYDROCHLOROTHIAZIDE [Concomitant]
     Indication: HYPERTENSION
     Dosage: 37.5 MG, DAILY AT BREAKFAST
  13. METOPROLOL [Concomitant]
     Indication: HYPERTENSION
     Dosage: 100 MG, DAILY AT BREAKFAST
  14. FUROSEMIDE [Concomitant]
     Indication: DIURETIC THERAPY
  15. URSODIOL [Concomitant]
     Indication: BILIARY CIRRHOSIS PRIMARY
     Dosage: 3 TABLETS OF 300 MG AT BREAKFAST AND 2 TABLETS OF 300 MG AT DINNER

REACTIONS (15)
  - BLOOD TRIGLYCERIDES INCREASED [None]
  - PRURITUS [None]
  - RASH [None]
  - BREAST PAIN [None]
  - CHEST PAIN [None]
  - BLOOD GLUCOSE INCREASED [None]
  - BLOOD MAGNESIUM DECREASED [None]
  - OESOPHAGEAL DISORDER [None]
  - OESOPHAGEAL OEDEMA [None]
  - SKIN DISCOLOURATION [None]
  - ALOPECIA [None]
  - VERTIGO [None]
  - SKIN DISORDER [None]
  - INSOMNIA [None]
  - BACK PAIN [None]
